FAERS Safety Report 4845492-9 (Version None)
Quarter: 2005Q4

REPORT INFORMATION
  Report Type: 
  Country: None (occurrence: None)
  Receive Date: 20051205
  Receipt Date: 20051128
  Transmission Date: 20060501
  Serious: Yes (Other)
  Sender: FDA-Public Use
  Company Number: PHRM2005FR03076

PATIENT
  Age: 42 Year
  Sex: Male

DRUGS (3)
  1. CELLCEPT [Concomitant]
     Indication: RENAL TRANSPLANT
  2. SOLU-MEDROL [Concomitant]
     Indication: RENAL TRANSPLANT
  3. NEORAL [Suspect]
     Indication: RENAL TRANSPLANT
     Dosage: 350 MG DAILY
     Route: 048
     Dates: start: 20041101

REACTIONS (1)
  - SPERM COUNT ZERO [None]
